FAERS Safety Report 7875707-4 (Version None)
Quarter: 2011Q4

REPORT INFORMATION
  Report Type: 
  Country: None (occurrence: None)
  Receive Date: 20111031
  Receipt Date: 20111020
  Transmission Date: 20120403
  Serious: Yes (Hospitalization, Other)
  Sender: FDA-Public Use
  Company Number: DE-SANOFI-AVENTIS-2011SA071137

PATIENT
  Age: 54 Year
  Sex: Female
  Weight: 48 kg

DRUGS (9)
  1. DOCETAXEL [Suspect]
     Route: 042
     Dates: start: 20101230, end: 20110323
  2. BEVACIZUMAB [Suspect]
     Route: 042
     Dates: start: 20101230, end: 20110525
  3. BEVACIZUMAB [Suspect]
     Route: 042
     Dates: start: 20101230, end: 20110525
  4. BUDESONIDE [Concomitant]
  5. FORADIL [Concomitant]
  6. THALIDOMIDE [Concomitant]
  7. BEVACIZUMAB [Suspect]
     Route: 042
     Dates: start: 20101230, end: 20110525
  8. SALBULAIR [Concomitant]
  9. PACLITAXEL [Suspect]
     Route: 042
     Dates: start: 20110413, end: 20110606

REACTIONS (3)
  - EJECTION FRACTION DECREASED [None]
  - DIARRHOEA [None]
  - PNEUMONIA [None]
